APPROVED DRUG PRODUCT: ARIMIDEX
Active Ingredient: ANASTROZOLE
Strength: 1MG
Dosage Form/Route: TABLET;ORAL
Application: N020541 | Product #001 | TE Code: AB
Applicant: ANI PHARMACEUTICALS INC
Approved: Dec 27, 1995 | RLD: Yes | RS: Yes | Type: RX